FAERS Safety Report 25980710 (Version 1)
Quarter: 2025Q4

REPORT INFORMATION
  Report Type: Spontaneous
  Country: US (occurrence: None)
  Receive Date: 20251030
  Receipt Date: 20251030
  Transmission Date: 20260117
  Serious: Yes (Life-Threatening, Hospitalization, Disabling, Other)
  Sender: FDA-CTU
  Company Number: None

PATIENT

DRUGS (2)
  1. RISPERIDONE [Suspect]
     Active Substance: RISPERIDONE
     Dates: start: 20250920, end: 20250925
  2. CARBAMAZEPINE [Suspect]
     Active Substance: CARBAMAZEPINE
     Dates: start: 20250920, end: 20250925

REACTIONS (4)
  - Rash [None]
  - Irritability [None]
  - Blood disorder [None]
  - Near death experience [None]

NARRATIVE: CASE EVENT DATE: 20250920
